FAERS Safety Report 14181116 (Version 1)
Quarter: 2017Q4

REPORT INFORMATION
  Report Type: Report from Study
  Country: US (occurrence: US)
  Receive Date: 20171112
  Receipt Date: 20171112
  Transmission Date: 20180321
  Serious: Yes (Death, Hospitalization, Other)
  Sender: FDA-Public Use
  Company Number: US-TORRENT-00003795

PATIENT
  Age: 15 Year
  Sex: Female

DRUGS (4)
  1. MIDAZOLAM HYDROCHLORIDE. [Suspect]
     Active Substance: MIDAZOLAM HYDROCHLORIDE
     Indication: SEIZURE
  2. BUPROPION HYDROCHLORIDE. [Suspect]
     Active Substance: BUPROPION HYDROCHLORIDE
     Indication: PRODUCT USED FOR UNKNOWN INDICATION
     Route: 048
  3. LEVETIRACETAM. [Suspect]
     Active Substance: LEVETIRACETAM
     Indication: PRODUCT USED FOR UNKNOWN INDICATION
  4. LORAZEPAM. [Suspect]
     Active Substance: LORAZEPAM
     Indication: SEIZURE

REACTIONS (14)
  - Miosis [Unknown]
  - Toxicity to various agents [Fatal]
  - Completed suicide [Fatal]
  - Electrocardiogram ST-T segment abnormal [Unknown]
  - Tachycardia [Unknown]
  - Brain death [Fatal]
  - Brain oedema [Unknown]
  - Agitation [Unknown]
  - Brain herniation [Unknown]
  - Cardiac arrest [Unknown]
  - Hypotension [Unknown]
  - Seizure [Unknown]
  - Drug ineffective [Unknown]
  - Overdose [Fatal]
